FAERS Safety Report 15244022 (Version 8)
Quarter: 2019Q3

REPORT INFORMATION
  Report Type: Spontaneous
  Country: US (occurrence: US)
  Receive Date: 20180806
  Receipt Date: 20190701
  Transmission Date: 20191004
  Serious: Yes (Hospitalization, Other)
  Sender: FDA-Public Use
  Company Number: US-SA-2018SA212842

PATIENT
  Age: 73 Year
  Sex: Female

DRUGS (2)
  1. METHOTREXATE. [Concomitant]
     Active Substance: METHOTREXATE
     Dosage: UNK
  2. KEVZARA [Suspect]
     Active Substance: SARILUMAB
     Indication: RHEUMATOID ARTHRITIS
     Dosage: 200 MG, QOW
     Route: 058
     Dates: start: 201807

REACTIONS (12)
  - Immunodeficiency [Unknown]
  - Cough [Unknown]
  - Bacterial infection [Unknown]
  - Malaise [Unknown]
  - Sneezing [Unknown]
  - Influenza [Unknown]
  - Pain [Unknown]
  - Thrombosis [Unknown]
  - Rib fracture [Unknown]
  - Pneumonia [Unknown]
  - Acne [Unknown]
  - Nasopharyngitis [Unknown]

NARRATIVE: CASE EVENT DATE: 20181004
